FAERS Safety Report 12298898 (Version 1)
Quarter: 2016Q2

REPORT INFORMATION
  Report Type: Spontaneous
  Country: US (occurrence: US)
  Receive Date: 20160425
  Receipt Date: 20160425
  Transmission Date: 20160815
  Serious: No
  Sender: FDA-Public Use
  Company Number: US-SHIRE-US201604972

PATIENT
  Age: 28 Year
  Sex: Male
  Weight: 86.17 kg

DRUGS (2)
  1. VYVANSE [Suspect]
     Active Substance: LISDEXAMFETAMINE DIMESYLATE
     Indication: ATTENTION DEFICIT/HYPERACTIVITY DISORDER
     Dosage: 30 MG, 1X/DAY:QD
     Route: 048
     Dates: start: 20160419
  2. CLONAZEPAM. [Concomitant]
     Active Substance: CLONAZEPAM
     Indication: SLEEP DISORDER
     Dosage: 1 MG, 1X/DAY:QD (QHS)
     Route: 048

REACTIONS (9)
  - Hyperhidrosis [Unknown]
  - Tachycardia [Unknown]
  - Disorientation [Unknown]
  - Hypertension [Unknown]
  - Anxiety [Unknown]
  - Dizziness [Unknown]
  - Feeling abnormal [Unknown]
  - Somnolence [Unknown]
  - Decreased appetite [Unknown]

NARRATIVE: CASE EVENT DATE: 20160419
